FAERS Safety Report 5583701-1 (Version None)
Quarter: 2008Q1

REPORT INFORMATION
  Report Type: 
  Country: None (occurrence: None)
  Receive Date: 20080103
  Receipt Date: 20071226
  Transmission Date: 20080703
  Serious: Yes (Other)
  Sender: FDA-Public Use
  Company Number: 163-21880-07110239

PATIENT
  Age: 53 Year
  Sex: Male
  Weight: 98.8842 kg

DRUGS (12)
  1. REVLIMID [Suspect]
     Indication: CHRONIC LYMPHOCYTIC LEUKAEMIA
     Dosage: 15 MG, DAILY FOR 21 OUT OF 28 DAYS, ORAL; 5 MG, DAILY, ORAL
     Route: 048
     Dates: start: 20071102, end: 20071105
  2. REVLIMID [Suspect]
     Indication: CHRONIC LYMPHOCYTIC LEUKAEMIA
     Dosage: 15 MG, DAILY FOR 21 OUT OF 28 DAYS, ORAL; 5 MG, DAILY, ORAL
     Route: 048
     Dates: start: 20071110
  3. TOPROL-XL [Concomitant]
  4. LIPITOR [Concomitant]
  5. LISINOPRIL [Concomitant]
  6. FOSAMAX [Concomitant]
  7. CALCIUM WITH VITAMIN D (CALCIUM WITH VITAMIN D) [Concomitant]
  8. ZINC (ZINC) [Concomitant]
  9. ALDARA CREAM (IMIQUIMOD) [Concomitant]
  10. METFORMIN (METFORMIN) [Concomitant]
  11. BACTRIM [Concomitant]
  12. PENTAMIDINE (PENAMINIDINE) [Concomitant]

REACTIONS (8)
  - BLOOD LACTATE DEHYDROGENASE INCREASED [None]
  - CONDITION AGGRAVATED [None]
  - LYMPHADENOPATHY [None]
  - NEPHROTIC SYNDROME [None]
  - PAIN [None]
  - RENAL DISORDER [None]
  - TUMOUR LYSIS SYNDROME [None]
  - VOMITING [None]
